FAERS Safety Report 19495290 (Version 3)
Quarter: 2021Q4

REPORT INFORMATION
  Report Type: Spontaneous
  Country: US (occurrence: US)
  Receive Date: 20210706
  Receipt Date: 20211105
  Transmission Date: 20220303
  Serious: Yes (Hospitalization, Other)
  Sender: FDA-Public Use
  Company Number: US-REGENERON PHARMACEUTICALS, INC.-2021-64122

PATIENT

DRUGS (35)
  1. PRALUENT [Suspect]
     Active Substance: ALIROCUMAB
     Indication: Hypercholesterolaemia
     Dosage: 75 MG/ML, Q2W
     Route: 058
  2. ACIDOPHILUS [Concomitant]
     Active Substance: LACTOBACILLUS ACIDOPHILUS
     Indication: Irritable bowel syndrome
     Dosage: UNK, QD
     Route: 048
     Dates: start: 20210207
  3. APLISOL [Concomitant]
     Active Substance: TUBERCULIN PURIFIED PROTEIN DERIVATIVE
     Indication: Investigation
     Dosage: 5 TUB. UNIT / 01 ML
     Route: 023
     Dates: start: 20210702, end: 20210702
  4. APLISOL [Concomitant]
     Active Substance: TUBERCULIN PURIFIED PROTEIN DERIVATIVE
     Indication: Investigation
  5. ASPIRIN [Concomitant]
     Active Substance: ASPIRIN
     Indication: Chronic left ventricular failure
     Dosage: 81 MG, QD
     Route: 048
     Dates: start: 20210702
  6. BISACODYL [Concomitant]
     Active Substance: BISACODYL
     Indication: Constipation
     Dosage: GIVE ONE ON THE MORNINIG OF THE 4TH DAY IF NO BM  ONCE A DAY PRN PRN 1
     Route: 054
     Dates: start: 20210702
  7. BISACODYL [Concomitant]
     Active Substance: BISACODYL
     Indication: Constipation
  8. BUPROPION [Concomitant]
     Active Substance: BUPROPION
     Indication: Major depression
     Dosage: 150 MG, BID
     Route: 048
     Dates: start: 20210702
  9. BUPROPION [Concomitant]
     Active Substance: BUPROPION
     Indication: Major depression
  10. ELIQUIS [Concomitant]
     Active Substance: APIXABAN
     Indication: Atrial fibrillation
     Dosage: 5 MG, BID
  11. ELIQUIS [Concomitant]
     Active Substance: APIXABAN
     Indication: Atrial fibrillation
     Dosage: 5 MG, BID
  12. ESCITALOPRAM OXALATE [Concomitant]
     Active Substance: ESCITALOPRAM OXALATE
     Indication: Major depression
     Dosage: 5 MG, BID
     Route: 048
     Dates: start: 20210702
  13. ESCITALOPRAM OXALATE [Concomitant]
     Active Substance: ESCITALOPRAM OXALATE
     Indication: Major depression
  14. EZETIMIBE [Concomitant]
     Active Substance: EZETIMIBE
     Indication: Hyperlipidaemia
     Dosage: 10 MG, QD
     Dates: start: 20210702
  15. EZETIMIBE [Concomitant]
     Active Substance: EZETIMIBE
     Indication: Hyperlipidaemia
  16. FLEET ENEMA [Concomitant]
     Active Substance: SODIUM PHOSPHATE, DIBASIC\SODIUM PHOSPHATE, MONOBASIC
     Indication: Constipation
     Dosage: ONCE A DAY - PRN; HS
     Route: 054
     Dates: start: 20210702
  17. FLEET ENEMA [Concomitant]
     Active Substance: SODIUM PHOSPHATE, DIBASIC\SODIUM PHOSPHATE, MONOBASIC
     Indication: Constipation
  18. FUROSEMIDE [Concomitant]
     Active Substance: FUROSEMIDE
     Indication: Chronic left ventricular failure
     Dosage: 40 MG, QD
     Route: 048
     Dates: start: 20210702, end: 20210707
  19. FUROSEMIDE [Concomitant]
     Active Substance: FUROSEMIDE
     Indication: Chronic left ventricular failure
  20. JARDIANCE [Concomitant]
     Active Substance: EMPAGLIFLOZIN
     Indication: Type 2 diabetes mellitus
     Dosage: 10 MG, QD
     Route: 048
     Dates: start: 20210702
  21. METOPROLOL SUCCINATE [Concomitant]
     Active Substance: METOPROLOL SUCCINATE
     Indication: Hypertensive heart disease
     Dosage: 25 MG, QD
     Dates: start: 20210702
  22. METOPROLOL SUCCINATE [Concomitant]
     Active Substance: METOPROLOL SUCCINATE
     Indication: Hypertensive heart disease
  23. MUCINEX [Concomitant]
     Active Substance: GUAIFENESIN
     Indication: Chronic obstructive pulmonary disease
     Dosage: 600 MG, BID
     Route: 048
     Dates: start: 20210702
  24. MUCINEX [Concomitant]
     Active Substance: GUAIFENESIN
     Indication: Chronic obstructive pulmonary disease
  25. NICOTINE [Concomitant]
     Active Substance: NICOTINE
     Indication: Tobacco user
     Dosage: 14 MG, QD
     Route: 062
     Dates: start: 20210702, end: 20210808
  26. NITROGLYCERIN [Concomitant]
     Active Substance: NITROGLYCERIN
     Indication: Chest pain
     Dosage: AS NEEDED; PRN1, PRN2, PRN3
     Route: 060
     Dates: start: 20210702
  27. NITROGLYCERIN [Concomitant]
     Active Substance: NITROGLYCERIN
     Indication: Chest pain
  28. NOVOLIN 10R [Concomitant]
     Indication: Type 2 diabetes mellitus
     Dosage: 100 DF, AS NECESSARY
     Route: 058
     Dates: start: 20210702
  29. OMEPRAZOLE [Concomitant]
     Active Substance: OMEPRAZOLE
     Indication: Reflux gastritis
     Dosage: 20 MG, QD
     Dates: start: 20210702
  30. OMEPRAZOLE [Concomitant]
     Active Substance: OMEPRAZOLE
     Indication: Reflux gastritis
  31. OXYGEN [Concomitant]
     Active Substance: OXYGEN
     Indication: Dyspnoea
     Dosage: PRN1 PRN2 PRN3
  32. OXYGEN [Concomitant]
     Active Substance: OXYGEN
     Indication: Dyspnoea
     Dosage: PRN1 PRN2 PRN3
  33. ACIDOPHILUS                        /00079701/ [Concomitant]
     Indication: Irritable bowel syndrome
     Dosage: UNK, QD
     Route: 048
     Dates: start: 20210207
  34. ASPIRIN                            /00002701/ [Concomitant]
     Indication: Chronic left ventricular failure
     Dosage: 81 MG, QD
     Route: 048
     Dates: start: 20210702
  35. NOVOLIN NOS [Concomitant]
     Active Substance: INSULIN HUMAN
     Indication: Type 2 diabetes mellitus
     Dosage: 100 DF, AS NECESSARY
     Route: 058
     Dates: start: 20210702

REACTIONS (2)
  - Cerebrovascular accident [Not Recovered/Not Resolved]
  - Product dose omission issue [Unknown]

NARRATIVE: CASE EVENT DATE: 20210201
